FAERS Safety Report 12892000 (Version 1)
Quarter: 2016Q4

REPORT INFORMATION
  Report Type: Spontaneous
  Country: JP (occurrence: JP)
  Receive Date: 20161028
  Receipt Date: 20161028
  Transmission Date: 20170207
  Serious: Yes (Other)
  Sender: FDA-Public Use
  Company Number: JP-BIOTEST-T 552/16

PATIENT
  Sex: Female

DRUGS (1)
  1. IVIG US [Suspect]
     Active Substance: HUMAN IMMUNOGLOBULIN G
     Indication: PROPHYLAXIS
     Dosage: FROM GESTATIONAL WEEK 16-35
     Route: 041

REACTIONS (1)
  - Platelet count decreased [Recovered/Resolved]
